FAERS Safety Report 22353425 (Version 1)
Quarter: 2023Q2

REPORT INFORMATION
  Report Type: Spontaneous
  Country: BY (occurrence: BY)
  Receive Date: 20230523
  Receipt Date: 20230523
  Transmission Date: 20230722
  Serious: Yes (Death, Life-Threatening)
  Sender: FDA-Public Use
  Company Number: BY-JNJFOC-20230548079

PATIENT
  Age: 79 Year
  Sex: Female
  Weight: 34 kg

DRUGS (5)
  1. BEDAQUILINE [Suspect]
     Active Substance: BEDAQUILINE
     Indication: Pulmonary tuberculosis
     Route: 048
     Dates: start: 20221122
  2. LINEZOLID [Suspect]
     Active Substance: LINEZOLID
     Indication: Pulmonary tuberculosis
     Route: 048
     Dates: start: 20221122
  3. CLOFAZIMINE [Suspect]
     Active Substance: CLOFAZIMINE
     Indication: Pulmonary tuberculosis
     Route: 048
     Dates: start: 20221122
  4. PRETOMANID [Suspect]
     Active Substance: PRETOMANID
     Indication: Pulmonary tuberculosis
     Route: 048
     Dates: start: 20221122
  5. PYRIDOXINE [Concomitant]
     Active Substance: PYRIDOXINE
     Indication: Prophylaxis
     Route: 065
     Dates: start: 20221122, end: 20230510

REACTIONS (1)
  - Oesophageal cancer metastatic [Fatal]

NARRATIVE: CASE EVENT DATE: 20230510
